FAERS Safety Report 8720458 (Version 3)
Quarter: 2012Q4

REPORT INFORMATION
  Report Type: 
  Country: JP (occurrence: JP)
  Receive Date: 20120813
  Receipt Date: 20121003
  Transmission Date: 20130627
  Serious: Yes (Death)
  Sender: FDA-Public Use
  Company Number: JP-SANOFI-AVENTIS-2012SA055500

PATIENT
  Age: 90 Year
  Sex: Male
  Weight: 55 kg

DRUGS (16)
  1. BAYASPIRIN [Concomitant]
     Dates: end: 20120729
  2. ATORVASTATIN CALCIUM [Concomitant]
     Dates: end: 20120729
  3. GASTER [Concomitant]
     Dates: end: 20120729
  4. LOXOPROFEN [Concomitant]
     Dates: end: 20120729
  5. ELPLAT [Suspect]
     Indication: LARGE INTESTINE CARCINOMA
     Route: 041
     Dates: start: 20120726, end: 20120726
  6. ELPLAT [Suspect]
     Indication: RECTAL CANCER
     Route: 041
     Dates: start: 20120726, end: 20120726
  7. CALCIUM LEVOFOLINATE [Suspect]
     Indication: RECTAL CANCER
     Dosage: 196.3 mg/m2
     Route: 041
     Dates: start: 20120726, end: 20120726
  8. 5-FU [Suspect]
     Indication: RECTAL CANCER
     Dosage: 392.7 mg/m2
     Route: 040
     Dates: start: 20120726, end: 20120726
  9. 5-FU [Suspect]
     Indication: RECTAL CANCER
     Dosage: 2356 mg/m2/d1-2
     Route: 041
     Dates: start: 20120726, end: 20120726
  10. ERBITUX [Suspect]
     Indication: RECTAL CANCER
     Route: 041
     Dates: start: 20120726, end: 20120726
  11. DEXAMETHASONE SODIUM PHOSPHATE [Concomitant]
     Dates: start: 20120726, end: 20120726
  12. KYTRIL [Concomitant]
     Dates: start: 20120726, end: 20120726
  13. BETAHISTINE MESILATE [Concomitant]
     Dates: start: 20120724, end: 20120729
  14. CEPHADOL [Concomitant]
     Dates: start: 20120724, end: 20120729
  15. SLOW-K [Concomitant]
     Dosage: slow release tablet
     Dates: end: 20120729
  16. AMLODIPINE BESILATE [Concomitant]
     Dates: end: 20120729

REACTIONS (6)
  - Metabolic acidosis [Fatal]
  - Myocardial infarction [Fatal]
  - Cardio-respiratory arrest [Fatal]
  - Renal failure acute [Fatal]
  - Vomiting [Unknown]
  - Nausea [Unknown]
